FAERS Safety Report 20492440 (Version 3)
Quarter: 2022Q1

REPORT INFORMATION
  Report Type: Report from Study
  Country: US (occurrence: US)
  Receive Date: 20220219
  Receipt Date: 20220317
  Transmission Date: 20220423
  Serious: Yes (Hospitalization, Congenital Anomaly, Other)
  Sender: FDA-Public Use
  Company Number: US-TAKEDA-2021TUS033983

PATIENT
  Age: 69 Year
  Sex: Female

DRUGS (38)
  1. MOBOCERTINIB [Suspect]
     Active Substance: MOBOCERTINIB
     Indication: Non-small cell lung cancer
     Dosage: 120 MILLIGRAM
     Route: 048
     Dates: start: 20201216, end: 20201216
  2. MOBOCERTINIB [Suspect]
     Active Substance: MOBOCERTINIB
     Dosage: 80 MILLIGRAM
     Route: 048
     Dates: start: 20210113, end: 20210203
  3. PEMETREXED [Suspect]
     Active Substance: PEMETREXED
     Indication: Non-small cell lung cancer
     Dosage: 500 MILLIGRAM/SQ. METER
     Route: 042
     Dates: start: 20201216, end: 20201216
  4. CARBOPLATIN [Suspect]
     Active Substance: CARBOPLATIN
     Indication: Non-small cell lung cancer
     Dosage: UNK
     Route: 042
     Dates: start: 20201216, end: 20201216
  5. ANASTROZOLE [Concomitant]
     Active Substance: ANASTROZOLE
     Indication: Breast cancer
     Dosage: 1 MILLIGRAM, QD
     Route: 048
     Dates: start: 202007
  6. ACETAMINOPHEN\OXYCODONE HYDROCHLORIDE [Concomitant]
     Active Substance: ACETAMINOPHEN\OXYCODONE HYDROCHLORIDE
     Indication: Pain
     Dosage: UNK UNK, Q4HR
     Route: 048
     Dates: start: 20201117, end: 20210203
  7. ATROPINE\DIPHENOXYLATE [Concomitant]
     Active Substance: ATROPINE\DIPHENOXYLATE
     Indication: Diarrhoea
     Dosage: 2.5 MILLIGRAM, TID
     Route: 048
     Dates: start: 20210104, end: 20210111
  8. ATROPINE\DIPHENOXYLATE [Concomitant]
     Active Substance: ATROPINE\DIPHENOXYLATE
     Dosage: UNK
     Route: 048
     Dates: start: 20210114, end: 20210114
  9. SODIUM CHLORIDE [Concomitant]
     Active Substance: SODIUM CHLORIDE
     Indication: Blood creatinine increased
     Dosage: 2000 PERCENT, QD
     Route: 042
     Dates: start: 20210105, end: 20210108
  10. SODIUM CHLORIDE [Concomitant]
     Active Substance: SODIUM CHLORIDE
     Indication: Hyponatraemia
     Dosage: 1000 MILLILITER
     Route: 042
     Dates: start: 20210114, end: 20210114
  11. SODIUM CHLORIDE [Concomitant]
     Active Substance: SODIUM CHLORIDE
     Dosage: 1000 MILLILITER
     Route: 042
     Dates: start: 20210121, end: 20210121
  12. SODIUM CHLORIDE [Concomitant]
     Active Substance: SODIUM CHLORIDE
     Dosage: 2 GRAM, BID
     Route: 048
     Dates: start: 20210126, end: 20210202
  13. PROCHLORPERAZINE [Concomitant]
     Active Substance: PROCHLORPERAZINE
     Indication: Nausea
     Dosage: 10 MILLIGRAM, Q8HR
     Route: 048
     Dates: start: 20201117, end: 20210105
  14. PROCHLORPERAZINE [Concomitant]
     Active Substance: PROCHLORPERAZINE
     Indication: Vomiting
     Dosage: 10 MILLIGRAM, Q6HR
     Route: 048
     Dates: start: 20210106, end: 20210111
  15. PREDNISONE [Concomitant]
     Active Substance: PREDNISONE
     Indication: Dyspnoea
     Dosage: 20 MILLIGRAM, QD
     Route: 048
     Dates: start: 20201219, end: 20210105
  16. PREDNISONE [Concomitant]
     Active Substance: PREDNISONE
     Indication: Fatigue
     Dosage: 10 MILLIGRAM, QD
     Route: 048
     Dates: start: 20210106
  17. PREDNISONE [Concomitant]
     Active Substance: PREDNISONE
     Dosage: 40 MILLIGRAM, QD
     Route: 048
     Dates: start: 20210127, end: 20210202
  18. PREDNISONE [Concomitant]
     Active Substance: PREDNISONE
     Dosage: 20 MILLIGRAM, QD
     Route: 048
     Dates: start: 20210203
  19. POTASSIUM CHLORIDE [Concomitant]
     Active Substance: POTASSIUM CHLORIDE
     Indication: Hypokalaemia
     Dosage: UNK, QD
     Route: 048
     Dates: start: 20201231, end: 20210111
  20. POTASSIUM CHLORIDE [Concomitant]
     Active Substance: POTASSIUM CHLORIDE
     Indication: Prophylaxis
     Dosage: 40 MILLIEQUIVALENT
     Route: 048
     Dates: start: 20210106, end: 20210106
  21. POTASSIUM CHLORIDE [Concomitant]
     Active Substance: POTASSIUM CHLORIDE
     Dosage: 10 MILLIGRAM, QD
     Route: 048
     Dates: start: 20210112, end: 20210202
  22. POTASSIUM CHLORIDE [Concomitant]
     Active Substance: POTASSIUM CHLORIDE
     Dosage: 10 MILLIGRAM, QD
     Route: 048
     Dates: start: 20210117, end: 20210202
  23. POTASSIUM CHLORIDE [Concomitant]
     Active Substance: POTASSIUM CHLORIDE
     Dosage: 20 MILLIEQUIVALENT
     Route: 042
     Dates: start: 20210121, end: 20210121
  24. POTASSIUM CHLORIDE [Concomitant]
     Active Substance: POTASSIUM CHLORIDE
     Dosage: 40 MILLIEQUIVALENT
     Route: 042
     Dates: start: 20210126, end: 20210126
  25. MAGNESIUM SULFATE [Concomitant]
     Active Substance: MAGNESIUM SULFATE
     Indication: Hypomagnesaemia
     Dosage: 4 GRAM, QD
     Route: 042
     Dates: start: 20210114, end: 20210114
  26. NITROFURANTOIN [Concomitant]
     Active Substance: NITROFURANTOIN
     Indication: Urinary tract infection
     Dosage: 100 MILLIGRAM, BID
     Route: 048
     Dates: start: 20210121, end: 20210126
  27. OPIUM [Concomitant]
     Active Substance: OPIUM
     Indication: Diarrhoea
     Dosage: 0.6 MILLILITER, QID
     Route: 048
     Dates: start: 20210126
  28. OCTREOTIDE [Concomitant]
     Active Substance: OCTREOTIDE
     Indication: Diarrhoea
     Dosage: 200 MILLIGRAM, TID
     Route: 058
     Dates: start: 20210128, end: 20210204
  29. DEXLANSOPRAZOLE [Concomitant]
     Active Substance: DEXLANSOPRAZOLE
     Indication: Gastrooesophageal reflux disease
     Dosage: 60 MILLIGRAM, QD
     Route: 048
     Dates: start: 20200923, end: 20210203
  30. FOLIC ACID [Concomitant]
     Active Substance: FOLIC ACID
     Indication: Supplementation therapy
     Dosage: 1 MILLIGRAM, QD
     Route: 048
     Dates: start: 20201117, end: 20210120
  31. ESTRADIOL [Concomitant]
     Active Substance: ESTRADIOL
     Indication: Vulvovaginal dryness
     Dosage: UNK UNK, 2/WEEK
     Route: 067
     Dates: start: 20200910, end: 20210203
  32. OXYCODONE [Concomitant]
     Active Substance: OXYCODONE
     Indication: Pain
     Dosage: 10 MILLIGRAM, BID
     Route: 048
     Dates: start: 20201130
  33. LOPERAMIDE [Concomitant]
     Active Substance: LOPERAMIDE
     Indication: Diarrhoea
     Dosage: 4 MILLIGRAM, QD
     Route: 048
     Dates: start: 20201217, end: 20210203
  34. SULFAMETHOXAZOLE AND TRIMETHOPRIM [Concomitant]
     Active Substance: SULFAMETHOXAZOLE\TRIMETHOPRIM
     Indication: Urinary tract infection
     Dosage: 800 MILLIGRAM, BID
     Route: 048
     Dates: start: 20201231, end: 20210105
  35. PHENAZOPYRIDINE [Concomitant]
     Active Substance: PHENAZOPYRIDINE
     Indication: Urinary tract infection
     Dosage: 200 MILLIGRAM, TID
     Route: 048
     Dates: start: 20201231, end: 20210105
  36. CALCIUM CARBONATE [Concomitant]
     Active Substance: CALCIUM CARBONATE
     Indication: Hypomagnesaemia
     Dosage: UNK UNK, BID
     Route: 048
     Dates: start: 20201231
  37. Potassium phosphate, Sodium phosphate [Concomitant]
     Indication: Hypophosphataemia
     Dosage: 250 MILLIGRAM, QD
     Route: 048
     Dates: start: 20210113, end: 20210121
  38. ONDANSETRON [Concomitant]
     Active Substance: ONDANSETRON
     Indication: Nausea
     Dosage: 4 MILLIGRAM, Q6HR
     Route: 048
     Dates: start: 20201117, end: 20201215

REACTIONS (4)
  - Acute kidney injury [Recovered/Resolved]
  - Hyponatraemia [Recovered/Resolved]
  - Hypokalaemia [Recovered/Resolved]
  - Metabolic acidosis [Recovered/Resolved]

NARRATIVE: CASE EVENT DATE: 20210105
